FAERS Safety Report 16780770 (Version 2)
Quarter: 2020Q1

REPORT INFORMATION
  Report Type: Report from Study
  Country: None (occurrence: DE)
  Receive Date: 20190906
  Receipt Date: 20200131
  Transmission Date: 20200409
  Serious: Yes (Congenital Anomaly, Other)
  Sender: FDA-Public Use
  Company Number: DE-ABBVIE-19K-062-2911332-00

PATIENT
  Age: 12 Week
  Sex: Male
  Weight: 2.8 kg

DRUGS (11)
  1. EPIVIR [Suspect]
     Active Substance: LAMIVUDINE
     Indication: PRODUCT USED FOR UNKNOWN INDICATION
     Dosage: 300 MILLIGRAM, QD
     Route: 065
  2. NORVIR [Suspect]
     Active Substance: RITONAVIR
     Indication: PRODUCT USED FOR UNKNOWN INDICATION
     Route: 064
  3. VIREAD [Suspect]
     Active Substance: TENOFOVIR DISOPROXIL FUMARATE
     Indication: PRODUCT USED FOR UNKNOWN INDICATION
     Dosage: 300 MILLIGRAM, QD
     Route: 064
  4. LAMIVUDINE. [Suspect]
     Active Substance: LAMIVUDINE
     Indication: PRODUCT USED FOR UNKNOWN INDICATION
     Dosage: UNK
     Route: 064
  5. 3TC [Suspect]
     Active Substance: LAMIVUDINE
     Indication: ANTIVIRAL TREATMENT
     Dosage: UNK
     Route: 064
     Dates: start: 20040729, end: 20050216
  6. RITONAVIR. [Suspect]
     Active Substance: RITONAVIR
     Indication: ANTIVIRAL TREATMENT
     Dosage: UNK(EXPOSURE DATES: PRIOR TO CONCEPTION TO 30 WEEKS.)
     Route: 064
     Dates: start: 20040729, end: 20050216
  7. FUZEON [Suspect]
     Active Substance: ENFUVIRTIDE
     Indication: ANTIVIRAL TREATMENT
     Dosage: UNK(EXPOSURE DATES: 35 WEEKS TO DELIVERY.)
     Route: 064
     Dates: start: 20050322, end: 20050331
  8. INVIRASE [Suspect]
     Active Substance: SAQUINAVIR MESYLATE
     Indication: ANTIVIRAL TREATMENT
     Route: 064
     Dates: end: 20050218
  9. COMBIVIR [Suspect]
     Active Substance: LAMIVUDINE\ZIDOVUDINE
     Indication: PRODUCT USED FOR UNKNOWN INDICATION
     Dosage: 900 MILLIGRAM, QD
     Route: 065
  10. LAMIVUDINE AND ZIDOVUDINE [Suspect]
     Active Substance: LAMIVUDINE\ZIDOVUDINE
     Indication: PRODUCT USED FOR UNKNOWN INDICATION
     Dosage: UNK
     Route: 064
  11. TENOFOVIR [Suspect]
     Active Substance: TENOFOVIR
     Indication: ANTIVIRAL TREATMENT
     Route: 064
     Dates: start: 20040729

REACTIONS (2)
  - Foetal exposure during pregnancy [Recovered/Resolved]
  - Congenital diaphragmatic hernia [Unknown]
